FAERS Safety Report 8178419-5 (Version None)
Quarter: 2012Q1

REPORT INFORMATION
  Report Type: 
  Country: None (occurrence: None)
  Receive Date: 20120301
  Receipt Date: 20120220
  Transmission Date: 20120608
  Serious: No
  Sender: FDA-Public Use
  Company Number: US-BAYER-2012-017414

PATIENT
  Sex: Male
  Weight: 83 kg

DRUGS (4)
  1. ALEVE (CAPLET) [Suspect]
     Dosage: 4 U, TID
     Route: 048
     Dates: start: 20120101
  2. OXYCODONE HCL [Concomitant]
  3. HYDROCODONE BITARTRATE [Concomitant]
     Dosage: UNK
  4. NAPROXEN (ALEVE) [Suspect]
     Indication: OROPHARYNGEAL PAIN
     Dosage: 4 U, TID
     Route: 048
     Dates: start: 20120101

REACTIONS (1)
  - NO ADVERSE EVENT [None]
